FAERS Safety Report 24874031 (Version 3)
Quarter: 2025Q3

REPORT INFORMATION
  Report Type: Spontaneous
  Country: EU (occurrence: EU)
  Receive Date: 20250122
  Receipt Date: 20250803
  Transmission Date: 20251021
  Serious: Yes (Hospitalization, Other)
  Sender: ALEXION PHARMACEUTICALS
  Company Number: EU-SA-2025SA015376

PATIENT
  Age: 2 Month
  Sex: Female
  Weight: 4.7 kg

DRUGS (1)
  1. NIRSEVIMAB [Suspect]
     Active Substance: NIRSEVIMAB
     Indication: Respiratory syncytial virus bronchiolitis
     Dates: start: 20240924, end: 20240924

REACTIONS (5)
  - Respiratory syncytial virus bronchiolitis [Unknown]
  - Cough [Recovering/Resolving]
  - Asthma [Unknown]
  - Rhinitis [Unknown]
  - Conjunctivitis [Unknown]

NARRATIVE: CASE EVENT DATE: 20241129
